FAERS Safety Report 14742869 (Version 1)
Quarter: 2018Q2

REPORT INFORMATION
  Report Type: Spontaneous
  Country: US (occurrence: US)
  Receive Date: 20180410
  Receipt Date: 20180410
  Transmission Date: 20180711
  Serious: No
  Sender: FDA-Public Use
  Company Number: PHEH2018US013629

PATIENT
  Sex: Female

DRUGS (1)
  1. SANDOSTATIN LAR DEPOT [Suspect]
     Active Substance: OCTREOTIDE ACETATE
     Indication: PRODUCT USED FOR UNKNOWN INDICATION
     Dosage: UNK
     Route: 065
     Dates: start: 2015, end: 201712

REACTIONS (7)
  - Mood swings [Unknown]
  - Laboratory test abnormal [Unknown]
  - Hot flush [Unknown]
  - Feeling abnormal [Unknown]
  - Cholelithiasis [Unknown]
  - Myalgia [Unknown]
  - Back pain [Unknown]
